FAERS Safety Report 8231223-1 (Version None)
Quarter: 2012Q1

REPORT INFORMATION
  Report Type: 
  Country: None (occurrence: None)
  Receive Date: 20120320
  Receipt Date: 20120308
  Transmission Date: 20120608
  Serious: Yes (Other)
  Sender: FDA-Public Use
  Company Number: 2012SP003662

PATIENT
  Age: 70 Year
  Sex: Female

DRUGS (7)
  1. ZOLOFT [Concomitant]
  2. FORMOTEROL FUMARATE [Concomitant]
  3. DIOVAN [Concomitant]
  4. DESLORATADINE [Suspect]
     Indication: RHINITIS ALLERGIC
  5. DESLORATADINE [Suspect]
     Indication: URTICARIA
  6. LEXOTAN [Concomitant]
  7. ACETYLCYSTEINE [Concomitant]

REACTIONS (2)
  - BALANCE DISORDER [None]
  - DIZZINESS [None]
